FAERS Safety Report 5919806-2 (Version None)
Quarter: 2008Q4

REPORT INFORMATION
  Report Type: 
  Country: None (occurrence: None)
  Receive Date: 20081010
  Receipt Date: 20080926
  Transmission Date: 20090506
  Serious: No
  Sender: FDA-Public Use
  Company Number: DSM-2008-00873

PATIENT
  Age: 43 Year
  Sex: Male

DRUGS (2)
  1. OLPRESS (OLMESARTAN MEDOXOMIL) (40 MILLIGRAM, TABLET) (OLMESARTAN MEDO [Suspect]
     Indication: HYPERTENSION
     Dosage: 40 MG (40 MG, 1 IN 1 D) ,ORAL
     Route: 048
     Dates: start: 20080601, end: 20080908
  2. LODOZ (HYDROCHLOROTHIAZIDE, BISOPROLOL FUMARATE) (TABLET) (HYDROCHLORO [Concomitant]

REACTIONS (3)
  - BLOOD CREATININE INCREASED [None]
  - BLOOD UREA INCREASED [None]
  - HYPOTENSION [None]
